FAERS Safety Report 9425946 (Version 1)
Quarter: 2013Q3

REPORT INFORMATION
  Report Type: Spontaneous
  Country: US (occurrence: US)
  Receive Date: 20130729
  Receipt Date: 20130729
  Transmission Date: 20140515
  Serious: No
  Sender: FDA-Public Use
  Company Number: US-009507513-1307USA007264

PATIENT
  Age: 45 Year
  Sex: Female

DRUGS (2)
  1. SAPHRIS [Suspect]
     Dosage: 5 MG, QD
  2. SAPHRIS [Suspect]
     Dosage: 10 UNK, UNK
     Dates: start: 20111015

REACTIONS (2)
  - Local swelling [Unknown]
  - Therapeutic response unexpected [Unknown]
